FAERS Safety Report 6891974 (Version 2)
Quarter: 2012Q4

REPORT INFORMATION
  Report Type: 
  Country: FR (occurrence: FR)
  Receive Date: 20090126
  Receipt Date: 20121211
  Transmission Date: 20130627
  Serious: Yes (Other)
  Sender: FDA-Public Use
  Company Number: FR-PFIZER INC-2009158776

PATIENT
  Age: 56 Year
  Sex: Male

DRUGS (3)
  1. TAHOR [Suspect]
     Dosage: 10 mg, UNK
  2. TAHOR [Suspect]
     Dosage: 80 mg, UNK
  3. PLACEBO [Suspect]
     Indication: CARDIOVASCULAR EVENT PROPHYLAXIS

REACTIONS (3)
  - Blood creatine phosphokinase increased [Unknown]
  - Muscle spasms [Unknown]
  - Fatigue [Unknown]
